FAERS Safety Report 5728994-2 (Version None)
Quarter: 2008Q2

REPORT INFORMATION
  Report Type: 
  Country: None (occurrence: None)
  Receive Date: 20080501
  Receipt Date: 20080418
  Transmission Date: 20081010
  Serious: Yes (Hospitalization)
  Sender: FDA-Public Use
  Company Number: 2007BI020533

PATIENT
  Age: 48 Year
  Sex: Female

DRUGS (1)
  1. AVONEX [Suspect]
     Indication: MULTIPLE SCLEROSIS
     Dosage: 30 UG; QW; IM
     Route: 030
     Dates: start: 20030801

REACTIONS (8)
  - ANKLE FRACTURE [None]
  - DIZZINESS [None]
  - FALL [None]
  - FAT EMBOLISM [None]
  - FIBULA FRACTURE [None]
  - POSTOPERATIVE RESPIRATORY DISTRESS [None]
  - PULMONARY EMBOLISM [None]
  - TIBIA FRACTURE [None]
